FAERS Safety Report 25042330 (Version 2)
Quarter: 2025Q1

REPORT INFORMATION
  Report Type: Report from Study
  Country: JP (occurrence: JP)
  Receive Date: 20250305
  Receipt Date: 20250310
  Transmission Date: 20250409
  Serious: No
  Sender: PFIZER
  Company Number: JP-PFIZER INC-PV202500025061

PATIENT
  Age: 74 Year
  Sex: Female

DRUGS (1)
  1. ELRANATAMAB [Suspect]
     Active Substance: ELRANATAMAB
     Indication: Plasma cell myeloma refractory
     Route: 058

REACTIONS (3)
  - Sepsis [Recovered/Resolved]
  - Cytomegalovirus viraemia [Recovered/Resolved]
  - Clostridium difficile colitis [Recovered/Resolved]
